FAERS Safety Report 6861047-9 (Version None)
Quarter: 2010Q3

REPORT INFORMATION
  Report Type: 
  Country: None (occurrence: None)
  Receive Date: 20100720
  Receipt Date: 20100618
  Transmission Date: 20110219
  Serious: Yes (Other)
  Sender: FDA-Public Use
  Company Number: PHHY2010FR40862

PATIENT
  Sex: Female

DRUGS (2)
  1. SANDOSTATIN LAR [Suspect]
     Dosage: 30 MG, MONTHLY
     Dates: start: 20100605
  2. UVEDOSE [Suspect]
     Dosage: 100000 IU
     Dates: start: 20100605

REACTIONS (8)
  - ASTHENIA [None]
  - BLOOD PARATHYROID HORMONE INCREASED [None]
  - NAUSEA [None]
  - OVERDOSE [None]
  - PYREXIA [None]
  - RENAL PAIN [None]
  - VITAMIN D INCREASED [None]
  - VOMITING [None]
